FAERS Safety Report 17081387 (Version 1)
Quarter: 2019Q4

REPORT INFORMATION
  Report Type: Spontaneous
  Country: US (occurrence: US)
  Receive Date: 20191127
  Receipt Date: 20191127
  Transmission Date: 20200122
  Serious: No
  Sender: FDA-Public Use
  Company Number: US-UCBSA-2018051217

PATIENT
  Sex: Female
  Weight: 88.9 kg

DRUGS (1)
  1. CIMZIA [Suspect]
     Active Substance: CERTOLIZUMAB PEGOL
     Indication: ANKYLOSING SPONDYLITIS
     Dosage: 400 MG, EV 4 WEEKS
     Route: 058

REACTIONS (3)
  - Injection site vesicles [Recovered/Resolved]
  - Injection site pain [Unknown]
  - Injection site mass [Recovered/Resolved]
